FAERS Safety Report 11214462 (Version 2)
Quarter: 2015Q2

REPORT INFORMATION
  Report Type: Spontaneous
  Country: BR (occurrence: BR)
  Receive Date: 20150624
  Receipt Date: 20150626
  Transmission Date: 20150821
  Serious: Yes (Hospitalization, Other)
  Sender: FDA-Public Use
  Company Number: BR-ASTRAZENECA-2015SE59114

PATIENT
  Age: 77 Year
  Sex: Female
  Weight: 78 kg

DRUGS (14)
  1. RIVOTRIL [Concomitant]
     Active Substance: CLONAZEPAM
     Indication: SLEEP DISORDER
  2. PLAVIX [Concomitant]
     Active Substance: CLOPIDOGREL BISULFATE
     Indication: ACUTE MYOCARDIAL INFARCTION
     Route: 048
     Dates: start: 201505, end: 20150610
  3. OMEPRAZOLE. [Suspect]
     Active Substance: OMEPRAZOLE
     Indication: GASTROOESOPHAGEAL REFLUX DISEASE
     Dosage: FASTING CONDITION, 20 MG, DAILY
     Route: 048
  4. ATORVASTATIN [Concomitant]
     Active Substance: ATORVASTATIN
     Indication: ACUTE MYOCARDIAL INFARCTION
     Route: 048
     Dates: start: 20150515
  5. DIVELOL [Concomitant]
     Indication: PULMONARY EMBOLISM
     Route: 048
     Dates: start: 20150515
  6. METFORMIN [Suspect]
     Active Substance: METFORMIN HYDROCHLORIDE
     Indication: DIABETES MELLITUS MANAGEMENT
     Dosage: NON AZ PRODUCT
     Route: 065
     Dates: start: 201506, end: 201506
  7. DIVELOL [Concomitant]
     Indication: ACUTE MYOCARDIAL INFARCTION
     Route: 048
     Dates: start: 20150515
  8. ALDACTONE [Concomitant]
     Active Substance: SPIRONOLACTONE
     Indication: PULMONARY EMBOLISM
     Route: 048
     Dates: start: 20150515
  9. ALDACTONE [Concomitant]
     Active Substance: SPIRONOLACTONE
     Indication: ACUTE MYOCARDIAL INFARCTION
     Route: 048
     Dates: start: 20150515
  10. ATORVASTATIN [Concomitant]
     Active Substance: ATORVASTATIN
     Indication: PULMONARY EMBOLISM
     Route: 048
     Dates: start: 20150515
  11. RENITEC [Concomitant]
     Active Substance: ENALAPRIL MALEATE
     Indication: PULMONARY EMBOLISM
     Route: 048
     Dates: start: 20150515
  12. RENITEC [Concomitant]
     Active Substance: ENALAPRIL MALEATE
     Indication: ACUTE MYOCARDIAL INFARCTION
     Route: 048
     Dates: start: 20150515
  13. SIMVASTATIN. [Concomitant]
     Active Substance: SIMVASTATIN
     Indication: BLOOD CHOLESTEROL ABNORMAL
     Dates: end: 201505
  14. BRILINTA [Suspect]
     Active Substance: TICAGRELOR
     Indication: ACUTE MYOCARDIAL INFARCTION
     Route: 048
     Dates: start: 20150610, end: 20150611

REACTIONS (6)
  - Off label use [Recovered/Resolved]
  - Dyspnoea [Recovered/Resolved]
  - Pulmonary embolism [Recovered/Resolved]
  - Myocardial necrosis marker increased [Recovered/Resolved]
  - Acute myocardial infarction [Recovered/Resolved]
  - Haematoma [Recovering/Resolving]

NARRATIVE: CASE EVENT DATE: 20150501
